FAERS Safety Report 24028189 (Version 1)
Quarter: 2024Q2

REPORT INFORMATION
  Report Type: Other
  Country: CA (occurrence: CA)
  Receive Date: 20240628
  Receipt Date: 20240628
  Transmission Date: 20240715
  Serious: Yes (Life-Threatening, Other)
  Sender: FDA-Public Use
  Company Number: CA-APOTEX-2024AP007587

PATIENT
  Age: 16 Year
  Sex: Female

DRUGS (1)
  1. IMATINIB [Suspect]
     Active Substance: IMATINIB
     Indication: Philadelphia positive acute lymphocytic leukaemia
     Dosage: 200 MILLIGRAM, QD
     Route: 065

REACTIONS (2)
  - Escherichia sepsis [Recovering/Resolving]
  - Neutropenic colitis [Recovering/Resolving]
